FAERS Safety Report 14126179 (Version 1)
Quarter: 2017Q4

REPORT INFORMATION
  Report Type: Spontaneous
  Country: US (occurrence: US)
  Receive Date: 20171025
  Receipt Date: 20171025
  Transmission Date: 20180321
  Serious: Yes (Hospitalization)
  Sender: FDA-Public Use
  Company Number: US-SA-884749

PATIENT
  Age: 16 Year
  Sex: Male

DRUGS (1)
  1. DOXYLAMINE SUCCINATE. [Suspect]
     Active Substance: DOXYLAMINE SUCCINATE
     Indication: OVERDOSE
     Route: 048

REACTIONS (29)
  - Flushing [Recovering/Resolving]
  - Cerebellar ataxia [Recovering/Resolving]
  - Agitation [Recovering/Resolving]
  - Mydriasis [Recovering/Resolving]
  - Nystagmus [Recovering/Resolving]
  - Sinus tachycardia [Recovering/Resolving]
  - Proteinuria [Recovering/Resolving]
  - Muscle atrophy [Recovering/Resolving]
  - Hypertension [Recovering/Resolving]
  - Disorientation [Recovering/Resolving]
  - Psychomotor hyperactivity [Recovering/Resolving]
  - Rhabdomyolysis [Recovering/Resolving]
  - Ventricular extrasystoles [Recovering/Resolving]
  - Petechiae [Recovering/Resolving]
  - Anticholinergic syndrome [Recovering/Resolving]
  - Hypertonia [Recovering/Resolving]
  - Vomiting [Recovering/Resolving]
  - Hyperpyrexia [Recovering/Resolving]
  - Suicide attempt [Unknown]
  - Laboratory test abnormal [Recovering/Resolving]
  - Haematuria [Recovering/Resolving]
  - Aggression [Recovering/Resolving]
  - Hallucination [Recovering/Resolving]
  - Urinary retention [Recovering/Resolving]
  - Oliguria [Recovering/Resolving]
  - Intentional overdose [Unknown]
  - Tachypnoea [Recovering/Resolving]
  - Tremor [Recovering/Resolving]
  - Rash macular [Recovering/Resolving]
